FAERS Safety Report 6130539-2 (Version None)
Quarter: 2009Q1

REPORT INFORMATION
  Report Type: 
  Country: None (occurrence: None)
  Receive Date: 20090323
  Receipt Date: 20090311
  Transmission Date: 20090719
  Serious: Yes (Hospitalization)
  Sender: FDA-Public Use
  Company Number: 8039495

PATIENT
  Age: 58 Year
  Sex: Female
  Weight: 113.63 kg

DRUGS (5)
  1. CIMZIA [Suspect]
     Indication: CROHN'S DISEASE
     Dosage: 400 MG 1/2W  SC
     Route: 058
     Dates: start: 20080601, end: 20081011
  2. HYDROCODONE BITARTRATE [Concomitant]
  3. NEXIUM [Concomitant]
  4. MULTIVITAMIN /01229101/ [Concomitant]
  5. GLUCOSAMINE  /00943602/ [Concomitant]

REACTIONS (4)
  - ALOPECIA [None]
  - BACK PAIN [None]
  - INTERVERTEBRAL DISC DISORDER [None]
  - STAPHYLOCOCCAL INFECTION [None]
